FAERS Safety Report 4693430-4 (Version None)
Quarter: 2005Q2

REPORT INFORMATION
  Report Type: 
  Country: None (occurrence: None)
  Receive Date: 20050617
  Receipt Date: 20050610
  Transmission Date: 20051028
  Serious: Yes (Death, Other)
  Sender: FDA-Public Use
  Company Number: PHBS2005AT08461

PATIENT
  Age: 60 Year
  Sex: Male

DRUGS (2)
  1. CYCLOSPORINE [Suspect]
     Indication: LIVER TRANSPLANT
     Route: 065
  2. MYCOPHENOLATE MOFETIL [Suspect]
     Indication: LIVER TRANSPLANT
     Route: 065

REACTIONS (4)
  - CYTOMEGALOVIRUS ENTERITIS [None]
  - ENDOCARDITIS BACTERIAL [None]
  - ENDOCARDITIS ENTEROCOCCAL [None]
  - SEPSIS [None]
